FAERS Safety Report 11168771 (Version 3)
Quarter: 2015Q2

REPORT INFORMATION
  Report Type: Report from Study
  Country: RU (occurrence: RU)
  Receive Date: 20150605
  Receipt Date: 20150618
  Transmission Date: 20150821
  Serious: Yes (Death, Life-Threatening, Hospitalization, Disabling, Other)
  Sender: FDA-Public Use
  Company Number: RU-ASTRAZENECA-2015SE55103

PATIENT
  Age: 25598 Day
  Sex: Male

DRUGS (5)
  1. DAPAGLIFLOZIN [Suspect]
     Active Substance: DAPAGLIFLOZIN
     Indication: TYPE 2 DIABETES MELLITUS
     Route: 048
     Dates: start: 20141014, end: 20150520
  2. DIABETON [Concomitant]
     Indication: DIABETES MELLITUS
     Route: 048
  3. PRESTANS [Concomitant]
     Indication: HYPERTENSION
     Route: 048
  4. KARDIOMAGNIL [Concomitant]
     Indication: ARTERITIS
     Route: 048
  5. ATORIS [Concomitant]
     Active Substance: ATORVASTATIN CALCIUM
     Route: 048
     Dates: end: 20150403

REACTIONS (1)
  - Adenocarcinoma pancreas [Fatal]

NARRATIVE: CASE EVENT DATE: 20150507
